FAERS Safety Report 5794539-4 (Version None)
Quarter: 2008Q2

REPORT INFORMATION
  Report Type: 
  Country: None (occurrence: None)
  Receive Date: 20080625
  Receipt Date: 20080613
  Transmission Date: 20081010
  Serious: Yes (Other)
  Sender: FDA-Public Use
  Company Number: DSU-2008-00892

PATIENT
  Age: 51 Year
  Sex: Female

DRUGS (4)
  1. OLMESARTAN MEDOXOMIL [Suspect]
     Indication: DRUG USE FOR UNKNOWN INDICATION
     Dosage: 20 MG (20 MG,QD), PER ORAL
     Route: 048
     Dates: start: 20080101
  2. LIPITOR [Suspect]
     Indication: BLOOD CHOLESTEROL
     Dosage: 20 MG (20 MG,QD), PER ORAL
     Route: 048
     Dates: start: 20080501
  3. EZETICAM (INGREDIENTS UNKNOWN) [Concomitant]
  4. ATACAND [Concomitant]

REACTIONS (1)
  - DIZZINESS [None]
